FAERS Safety Report 6857173-0 (Version None)
Quarter: 2010Q3

REPORT INFORMATION
  Report Type: 
  Country: None (occurrence: None)
  Receive Date: 20100719
  Receipt Date: 20100714
  Transmission Date: 20110219
  Serious: Yes (Death, Other)
  Sender: FDA-Public Use
  Company Number: DE-CELGENEUS-062-50794-10070054

PATIENT
  Age: 57 Year
  Sex: Male
  Weight: 69 kg

DRUGS (6)
  1. VIDAZA [Suspect]
     Route: 058
     Dates: start: 20100201
  2. RED BLOOD CELLS [Concomitant]
     Indication: PRODUCT USED FOR UNKNOWN INDICATION
     Dosage: 6 UNITS
     Route: 051
  3. PLATELETS, CONCENTRATED [Concomitant]
     Indication: PRODUCT USED FOR UNKNOWN INDICATION
     Route: 051
  4. NEUPOGEN [Concomitant]
     Indication: PRODUCT USED FOR UNKNOWN INDICATION
     Route: 065
  5. ANTIBIOTICS [Concomitant]
     Indication: PROPHYLAXIS
     Route: 065
  6. ANTIMYCOTICS [Concomitant]
     Indication: PROPHYLAXIS
     Route: 065

REACTIONS (2)
  - HYPERCALCAEMIA [None]
  - RENAL FAILURE [None]
